FAERS Safety Report 7870986-1 (Version None)
Quarter: 2011Q4

REPORT INFORMATION
  Report Type: 
  Country: None (occurrence: None)
  Receive Date: 20111029
  Receipt Date: 20110222
  Transmission Date: 20120403
  Serious: No
  Sender: FDA-Public Use
  Company Number: US-AMGEN-USASP2011010347

PATIENT
  Age: 48 Year
  Sex: Female

DRUGS (3)
  1. ENBREL [Suspect]
     Indication: OSTEOARTHRITIS
  2. ENBREL [Suspect]
     Indication: PSORIATIC ARTHROPATHY
  3. ENBREL [Suspect]
     Indication: PSORIASIS

REACTIONS (8)
  - SKIN HAEMORRHAGE [None]
  - PSORIASIS [None]
  - SCAR [None]
  - RASH MACULAR [None]
  - PSORIATIC ARTHROPATHY [None]
  - RASH PRURITIC [None]
  - SKIN REACTION [None]
  - RASH PAPULAR [None]
